FAERS Safety Report 24696394 (Version 3)
Quarter: 2025Q1

REPORT INFORMATION
  Report Type: Spontaneous
  Country: US (occurrence: US)
  Receive Date: 20241204
  Receipt Date: 20250204
  Transmission Date: 20250408
  Serious: Yes (Hospitalization, Other)
  Sender: BIOVITRUM
  Company Number: US-BIOVITRUM-2024-US-015315

PATIENT
  Age: 60 Year
  Sex: Male

DRUGS (1)
  1. VONJO [Suspect]
     Active Substance: PACRITINIB
     Indication: Myeloproliferative neoplasm
     Route: 048
     Dates: start: 20240720

REACTIONS (7)
  - Chills [Not Recovered/Not Resolved]
  - Diarrhoea [Recovering/Resolving]
  - Feeling of body temperature change [Unknown]
  - Off label use [Not Recovered/Not Resolved]
  - Seizure [Unknown]
  - Product dose omission issue [Unknown]
  - Product distribution issue [Unknown]

NARRATIVE: CASE EVENT DATE: 20240720
